FAERS Safety Report 24863019 (Version 1)
Quarter: 2025Q1

REPORT INFORMATION
  Report Type: Spontaneous
  Country: SE (occurrence: SE)
  Receive Date: 20250120
  Receipt Date: 20250120
  Transmission Date: 20250408
  Serious: Yes (Other)
  Sender: CATALYST PHARMA
  Company Number: SE-CATALYSTPHARMACEUTICALPARTNERS-SE-CATA-25-00081

PATIENT
  Age: 78 Year
  Sex: Male

DRUGS (8)
  1. FYCOMPA [Suspect]
     Active Substance: PERAMPANEL
     Indication: Product used for unknown indication
     Route: 048
     Dates: start: 202412, end: 202412
  2. ELIQUIS [Concomitant]
     Active Substance: APIXABAN
     Indication: Product used for unknown indication
     Dosage: 10.0 MILLIGRAM(S) (5 MILLIGRAM(S), 1 IN 0.5 DAY)
     Route: 065
  3. ENALAPRIL [Concomitant]
     Active Substance: ENALAPRIL
     Indication: Product used for unknown indication
     Dosage: 5.0 MILLIGRAM(S) (5 MILLIGRAM(S), 1 IN 1 DAY)
     Route: 065
  4. LAMOTRIGINE [Concomitant]
     Active Substance: LAMOTRIGINE
     Indication: Product used for unknown indication
     Dosage: 400.0 MILLIGRAM(S) (200 MILLIGRAM(S), 1 IN 0.5 DAY)
     Route: 065
  5. LAMOTRIGINE [Concomitant]
     Active Substance: LAMOTRIGINE
     Dosage: 25.0 MILLIGRAM(S) (25 MILLIGRAM(S), 1 IN 1 DAY)
     Route: 065
  6. MIDAZOLAM HYDROCHLORIDE [Concomitant]
     Active Substance: MIDAZOLAM HYDROCHLORIDE
     Indication: Product used for unknown indication
     Route: 065
  7. TOPIRAMATE [Concomitant]
     Active Substance: TOPIRAMATE
     Indication: Product used for unknown indication
     Dosage: 400.0 MILLIGRAM(S) (200 MILLIGRAM(S), 1 IN 0.5 DAY)
     Route: 065
  8. SERTRALINE [Concomitant]
     Active Substance: SERTRALINE HYDROCHLORIDE
     Indication: Product used for unknown indication
     Dosage: 50.0 MILLIGRAM(S) (50 MILLIGRAM(S), 1 IN 1 DAY)
     Route: 065

REACTIONS (3)
  - Chest pain [Recovered/Resolved]
  - Hallucination [Recovered/Resolved]
  - Headache [Recovered/Resolved]

NARRATIVE: CASE EVENT DATE: 20241214
